FAERS Safety Report 7595841-6 (Version None)
Quarter: 2011Q3

REPORT INFORMATION
  Report Type: 
  Country: None (occurrence: None)
  Receive Date: 20110707
  Receipt Date: 20110705
  Transmission Date: 20111222
  Serious: No
  Sender: FDA-Public Use
  Company Number: US-PFIZER INC-2011150347

PATIENT
  Sex: Female
  Weight: 70.3 kg

DRUGS (2)
  1. PRISTIQ [Suspect]
     Indication: MIGRAINE
  2. PRISTIQ [Suspect]
     Indication: DEPRESSION
     Dosage: 25 MG, 1X/DAY
     Route: 048
     Dates: start: 20101001

REACTIONS (1)
  - FEELING ABNORMAL [None]
